FAERS Safety Report 5323303-5 (Version None)
Quarter: 2007Q2

REPORT INFORMATION
  Report Type: 
  Country: None (occurrence: None)
  Receive Date: 20070221
  Receipt Date: 20061221
  Transmission Date: 20071010
  Serious: Yes (Life-Threatening)
  Sender: FDA-Public Use
  Company Number: BDI-008970

PATIENT
  Age: 61 Year
  Sex: Male

DRUGS (14)
  1. ISOVUE-370 [Suspect]
     Indication: HAEMATURIA
     Dosage: 120 ML ONCE IV
     Route: 042
     Dates: start: 20061218, end: 20061218
  2. SLIDING SCALE INSULIN [Concomitant]
  3. ASPIRIN [Concomitant]
  4. CAPTOPRIL [Concomitant]
  5. COREG [Concomitant]
  6. LASIX [Concomitant]
  7. SYNTHROID [Concomitant]
  8. PROTONIX /01263201/ [Concomitant]
  9. POTASSIUM CHLORIDE [Concomitant]
  10. ZOCOR [Concomitant]
  11. THIAMINE [Concomitant]
  12. NITROFURANTOIN [Concomitant]
  13. LORTAB [Concomitant]
  14. MORPHINE [Concomitant]

REACTIONS (1)
  - CARDIO-RESPIRATORY ARREST [None]
